FAERS Safety Report 14124350 (Version 1)
Quarter: 2017Q4

REPORT INFORMATION
  Report Type: Spontaneous
  Country: US (occurrence: US)
  Receive Date: 20171025
  Receipt Date: 20171025
  Transmission Date: 20180321
  Serious: Yes (Death, Hospitalization)
  Sender: FDA-Public Use
  Company Number: US-INSYS THERAPEUTICS, INC-INS201710-000605

PATIENT
  Sex: Female

DRUGS (5)
  1. MEPERIDINE [Concomitant]
     Active Substance: MEPERIDINE
  2. MORPHINE [Concomitant]
     Active Substance: MORPHINE
  3. SUBSYS [Suspect]
     Active Substance: FENTANYL
     Indication: PAIN
     Route: 060
  4. DILAUDID [Concomitant]
     Active Substance: HYDROMORPHONE HYDROCHLORIDE
  5. SUBSYS [Suspect]
     Active Substance: FENTANYL
     Route: 060

REACTIONS (1)
  - Hospitalisation [Unknown]
